FAERS Safety Report 8662077 (Version 3)
Quarter: 2013Q2

REPORT INFORMATION
  Report Type: Spontaneous
  Country: FR (occurrence: FR)
  Receive Date: 20120712
  Receipt Date: 20130528
  Transmission Date: 20140414
  Serious: Yes (Disabling)
  Sender: FDA-Public Use
  Company Number: FR-009507513-1207FRA000798

PATIENT
  Age: 79 Year
  Sex: Female

DRUGS (9)
  1. SINGULAIR [Suspect]
     Indication: ASTHMA
     Dosage: 10 MG, QD
     Route: 048
     Dates: start: 200910
  2. HYDROCORTISONE [Suspect]
     Dosage: 30 MG, QD
     Route: 048
  3. SOLU-MEDROL [Suspect]
     Indication: PRODUCT USED FOR UNKNOWN INDICATION
     Dosage: 250 MG DAILY DECREASED TO 0 MG UNTIL THE END OF THERAPY ORAL
     Route: 048
     Dates: start: 201106
  4. SYMBICORT TURBUHALER [Suspect]
     Indication: ASTHMA
     Dosage: 400/12 ?G
     Route: 055
     Dates: start: 2001
  5. SYMBICORT TURBUHALER [Suspect]
     Dosage: 320/9 UG PER DOSE, ONE INHALATION TWICE A DAY
     Route: 055
  6. XOLAIR [Suspect]
     Indication: ASTHMA
     Dosage: 225 MG, Q2W
     Route: 058
     Dates: start: 2001
  7. CALCIUM (UNSPECIFIED) [Suspect]
     Dosage: 500 MG, BID
     Route: 048
     Dates: start: 201005
  8. UVEDOSE [Suspect]
     Indication: ASTHMA
     Dosage: 100000 IU, MTH
     Route: 048
     Dates: start: 20101126
  9. VITAMIN D (UNSPECIFIED) [Suspect]
     Dosage: 1 DF, QMO

REACTIONS (1)
  - Tendonitis [Not Recovered/Not Resolved]
